FAERS Safety Report 24409183 (Version 5)
Quarter: 2025Q1

REPORT INFORMATION
  Report Type: Spontaneous
  Country: CN (occurrence: CN)
  Receive Date: 20241008
  Receipt Date: 20250228
  Transmission Date: 20250409
  Serious: Yes (Other)
  Sender: NOVO NORDISK
  Company Number: CN-NOVOPROD-1292754

PATIENT
  Age: 47 Year
  Sex: Male
  Weight: 63 kg

DRUGS (4)
  1. TRESIBA [Suspect]
     Active Substance: INSULIN DEGLUDEC
     Indication: Latent autoimmune diabetes in adults
     Dates: start: 2021
  2. NOVORAPID [Suspect]
     Active Substance: INSULIN ASPART
     Indication: Latent autoimmune diabetes in adults
     Dosage: 8 IU, TID(IN THE MORNING, AFTERNOON, AND EVENING)
     Dates: start: 2019
  3. INSULIN GLARGINE [Concomitant]
     Active Substance: INSULIN GLARGINE
     Dates: start: 2019, end: 2021
  4. ROSUVASTATIN CALCIUM [Concomitant]
     Active Substance: ROSUVASTATIN CALCIUM
     Indication: Product used for unknown indication
     Route: 048

REACTIONS (4)
  - Diabetic retinopathy [Unknown]
  - Discomfort [Unknown]
  - Gastrooesophageal reflux disease [Unknown]
  - Nausea [Unknown]
